FAERS Safety Report 10566270 (Version 1)
Quarter: 2014Q4

REPORT INFORMATION
  Report Type: Spontaneous
  Country: US (occurrence: US)
  Receive Date: 20141105
  Receipt Date: 20141105
  Transmission Date: 20150529
  Serious: No
  Sender: FDA-Public Use
  Company Number: US-BAYER-2014-163388

PATIENT
  Age: 27 Year
  Sex: Female

DRUGS (1)
  1. MIRENA [Suspect]
     Active Substance: LEVONORGESTREL
     Indication: CONTRACEPTION
     Dosage: 20 MCG/24HR, CONT
     Route: 015
     Dates: start: 20091103

REACTIONS (5)
  - Vertigo [None]
  - Device misuse [None]
  - Dizziness [Recovered/Resolved]
  - Vertigo [Recovered/Resolved]
  - Dizziness [None]

NARRATIVE: CASE EVENT DATE: 201205
